FAERS Safety Report 5912084-X (Version None)
Quarter: 2008Q4

REPORT INFORMATION
  Report Type: 
  Country: None (occurrence: None)
  Receive Date: 20081007
  Receipt Date: 20081007
  Transmission Date: 20090506
  Serious: Yes (Hospitalization)
  Sender: FDA-Public Use
  Company Number: None

PATIENT
  Sex: Male

DRUGS (15)
  1. REVLIMID [Suspect]
     Indication: PROSTATE CANCER
     Dosage: 25 MG QD FOR 21 DAYS PO
     Route: 048
     Dates: start: 20080621, end: 20080706
  2. CITALOPRAM HYDROBROMIDE [Concomitant]
  3. COSOPT EYE DROPS [Concomitant]
  4. LUNESTA [Concomitant]
  5. LUPRON [Concomitant]
  6. REMERON [Concomitant]
  7. SIMVASTIN [Concomitant]
  8. FLOMAX [Concomitant]
  9. CALCIUM CARBONATE [Concomitant]
  10. CARDIZEM [Concomitant]
  11. PROCRIT [Concomitant]
  12. FLUCONAZOLE [Concomitant]
  13. LASIX [Concomitant]
  14. LORTAB [Concomitant]
  15. NITROGLYCERIN [Concomitant]

REACTIONS (18)
  - ARTHRALGIA [None]
  - ATRIAL FIBRILLATION [None]
  - CANDIDIASIS [None]
  - CHOLECYSTITIS [None]
  - CHOLELITHIASIS [None]
  - CONDITION AGGRAVATED [None]
  - DECREASED APPETITE [None]
  - DYSPNOEA [None]
  - EJECTION FRACTION [None]
  - FALL [None]
  - FLUID INTAKE REDUCED [None]
  - HEAD INJURY [None]
  - PANCREATITIS [None]
  - PANCYTOPENIA [None]
  - RENAL FAILURE ACUTE [None]
  - RESPIRATORY FAILURE [None]
  - SEPSIS [None]
  - SYNCOPE [None]
